FAERS Safety Report 4946278-7 (Version None)
Quarter: 2006Q1

REPORT INFORMATION
  Report Type: 
  Country: None (occurrence: None)
  Receive Date: 20060316
  Receipt Date: 20060316
  Transmission Date: 20060701
  Serious: Yes (Life-Threatening, Hospitalization, Other)
  Sender: FDA-Public Use
  Company Number: None

PATIENT
  Age: 32 Year
  Sex: Female
  Weight: 63.1 kg

DRUGS (3)
  1. DILAUDID [Suspect]
     Indication: NEPHROLITHIASIS
     Dosage: 1 MG EVERY3 HOURS IV DRIP
     Route: 041
     Dates: start: 20050919, end: 20050919
  2. DILAUDID [Suspect]
     Indication: PAIN
     Dosage: 1 MG EVERY3 HOURS IV DRIP
     Route: 041
     Dates: start: 20050919, end: 20050919
  3. DILAUDID [Suspect]
     Indication: PYELONEPHRITIS
     Dosage: 1 MG EVERY3 HOURS IV DRIP
     Route: 041
     Dates: start: 20050919, end: 20050919

REACTIONS (3)
  - LOSS OF CONSCIOUSNESS [None]
  - OXYGEN SATURATION DECREASED [None]
  - TACHYCARDIA [None]
